FAERS Safety Report 8325106-6 (Version None)
Quarter: 2012Q2

REPORT INFORMATION
  Report Type: 
  Country: None (occurrence: None)
  Receive Date: 20120427
  Receipt Date: 20120417
  Transmission Date: 20120825
  Serious: Yes (Life-Threatening, Hospitalization)
  Sender: FDA-Public Use
  Company Number: EU-2012-10098

PATIENT
  Age: 86 Year
  Sex: Male

DRUGS (12)
  1. VOLTAREN (DICLOFENAC SODIUM) GEL [Concomitant]
  2. ASPIRIN [Suspect]
     Indication: PROPHYLAXIS
     Dosage: 1 DF DOSAGE FORM, ORAL
     Route: 048
     Dates: start: 20090101, end: 20111013
  3. VALSARTAN [Concomitant]
  4. LORAZEPAM [Concomitant]
  5. LOBIVON 5 MG COMPRIMIDOS, 28 COMPRIMIDOS RANURADOS (NEBIVOLOL HIDROCLO [Concomitant]
  6. SIMVASTATINA (SIMVASTATIN) [Concomitant]
  7. OMEPRAZOLE [Concomitant]
  8. TAMSULOSIN (TAMSULOSIN HYDROCHLORIDE) [Concomitant]
  9. AMLODIPINO (AMLODIPINE) [Concomitant]
  10. PLETAL [Suspect]
     Dosage: 100 MG MILLIGRAM(S), ORAL
     Route: 048
     Dates: start: 20110601, end: 20111013
  11. DUTASTERIDE (DUTASTERIDE) [Concomitant]
  12. ALMAX (ALMAGATE) [Concomitant]

REACTIONS (2)
  - DRUG INTERACTION [None]
  - LOWER GASTROINTESTINAL HAEMORRHAGE [None]
